FAERS Safety Report 9682883 (Version 1)
Quarter: 2013Q4

REPORT INFORMATION
  Report Type: Spontaneous
  Country: US (occurrence: US)
  Receive Date: 20131112
  Receipt Date: 20131112
  Transmission Date: 20140711
  Serious: No
  Sender: FDA-Public Use
  Company Number: US-ROXANE LABORATORIES, INC.-2013-RO-01811RO

PATIENT
  Sex: Male

DRUGS (1)
  1. PREDNISONE [Suspect]

REACTIONS (1)
  - Oedema [Not Recovered/Not Resolved]
